FAERS Safety Report 23892749 (Version 1)
Quarter: 2024Q2

REPORT INFORMATION
  Report Type: Spontaneous
  Country: FR (occurrence: FR)
  Receive Date: 20240524
  Receipt Date: 20240524
  Transmission Date: 20240716
  Serious: Yes (Hospitalization, Other)
  Sender: FDA-Public Use
  Company Number: FR-AFSSAPS-AVCF2024000321

PATIENT
  Age: 21 Year
  Sex: Female

DRUGS (1)
  1. ALPRAZOLAM [Suspect]
     Active Substance: ALPRAZOLAM
     Indication: Product used for unknown indication
     Dosage: UNK
     Route: 048
     Dates: start: 20220101

REACTIONS (2)
  - Poisoning deliberate [Not Recovered/Not Resolved]
  - Psychomotor skills impaired [Not Recovered/Not Resolved]

NARRATIVE: CASE EVENT DATE: 20240426
